FAERS Safety Report 23717500 (Version 3)
Quarter: 2024Q2

REPORT INFORMATION
  Report Type: Spontaneous
  Country: JP (occurrence: JP)
  Receive Date: 20240408
  Receipt Date: 20240517
  Transmission Date: 20240716
  Serious: Yes (Other)
  Sender: FDA-Public Use
  Company Number: JP-RADIUS HEALTH, INC.-2024JP001866

PATIENT
  Age: 85 Year
  Sex: Female

DRUGS (11)
  1. ABALOPARATIDE [Suspect]
     Active Substance: ABALOPARATIDE
     Indication: Osteoporosis
     Dosage: 80 MICROGRAM
     Route: 058
     Dates: start: 20240126, end: 20240228
  2. MIROGABALIN BESYLATE [Suspect]
     Active Substance: MIROGABALIN BESYLATE
     Indication: Product used for unknown indication
     Dosage: 10 MILLIGRAM
     Route: 048
     Dates: end: 20240305
  3. ROXADUSTAT [Concomitant]
     Active Substance: ROXADUSTAT
     Indication: Product used for unknown indication
     Dosage: 50 MILLIGRAM/DAY
     Route: 048
  4. BENIDIPINE HYDROCHLORIDE [Concomitant]
     Active Substance: BENIDIPINE HYDROCHLORIDE
     Indication: Product used for unknown indication
     Dosage: 4 MILLIGRAM/DAY
     Route: 048
  5. VALSARTAN [Concomitant]
     Active Substance: VALSARTAN
     Indication: Product used for unknown indication
     Dosage: 40 MILLIGRAM/DAY
     Route: 048
  6. ESOMEPRAZOLE MAGNESIUM [Concomitant]
     Active Substance: ESOMEPRAZOLE MAGNESIUM
     Indication: Product used for unknown indication
     Dosage: 20 MILLIGRAM/DAY
     Route: 048
  7. SOLIFENACIN SUCCINATE [Concomitant]
     Active Substance: SOLIFENACIN SUCCINATE
     Indication: Product used for unknown indication
     Dosage: 5 MILLIGRAM/DAY
     Route: 048
  8. TEPRENONE [Concomitant]
     Active Substance: TEPRENONE
     Indication: Product used for unknown indication
     Dosage: 150 MILLIGRAM/DAY
     Route: 048
  9. LIMAPROST [Concomitant]
     Active Substance: LIMAPROST
     Indication: Product used for unknown indication
     Dosage: 15 MICROGRAM/DAY
     Route: 048
  10. BETAHISTINE MESILATE [Concomitant]
     Active Substance: BETAHISTINE MESILATE
     Indication: Product used for unknown indication
     Dosage: 36 MILLIGRAM/DAY
     Route: 048
  11. EPERISONE HYDROCHLORIDE [Concomitant]
     Active Substance: EPERISONE HYDROCHLORIDE
     Indication: Product used for unknown indication
     Dosage: 150 MILLIGRAM/DAY
     Route: 048

REACTIONS (3)
  - Hypercalcaemia [Recovered/Resolved]
  - Depressed level of consciousness [Recovering/Resolving]
  - Muscular weakness [Recovering/Resolving]

NARRATIVE: CASE EVENT DATE: 20240228
